FAERS Safety Report 7112707-6 (Version None)
Quarter: 2010Q4

REPORT INFORMATION
  Report Type: 
  Country: None (occurrence: None)
  Receive Date: 20101119
  Receipt Date: 20101109
  Transmission Date: 20110411
  Serious: Yes (Hospitalization, Other)
  Sender: FDA-Public Use
  Company Number: PHHY2010IE75513

PATIENT
  Sex: Male

DRUGS (3)
  1. ZOMETA [Suspect]
     Dosage: 4 MG, PER MONTH
     Dates: start: 20090116, end: 20100728
  2. AMPICILLIN SODIUM/SULBACTAM SODIUM [Concomitant]
     Dosage: UNK
  3. METRONIDAZOLE [Concomitant]
     Dosage: UNK

REACTIONS (4)
  - BONE DISORDER [None]
  - OSTEONECROSIS OF JAW [None]
  - PAIN IN JAW [None]
  - TOOTH EXTRACTION [None]
